FAERS Safety Report 20703903 (Version 3)
Quarter: 2022Q3

REPORT INFORMATION
  Report Type: Spontaneous
  Country: JP (occurrence: JP)
  Receive Date: 20220413
  Receipt Date: 20220818
  Transmission Date: 20221027
  Serious: Yes (Death, Other)
  Sender: FDA-Public Use
  Company Number: JP-AUROBINDO-AUR-APL-2022-012814

PATIENT
  Age: 77 Year
  Sex: Female

DRUGS (2)
  1. FOLOTYN [Suspect]
     Active Substance: PRALATREXATE
     Indication: Peripheral T-cell lymphoma unspecified
     Dosage: 30 MG/M2
     Route: 042
     Dates: start: 20170920
  2. FORODESINE HYDROCHLORIDE [Suspect]
     Active Substance: FORODESINE HYDROCHLORIDE
     Indication: Peripheral T-cell lymphoma unspecified
     Dosage: 600 MILLIGRAM, ONCE A DAY
     Route: 048
     Dates: start: 20170607

REACTIONS (2)
  - Malignant neoplasm progression [Fatal]
  - Stomatitis [Unknown]

NARRATIVE: CASE EVENT DATE: 20171030
